FAERS Safety Report 6077713-1 (Version None)
Quarter: 2009Q1

REPORT INFORMATION
  Report Type: 
  Country: None (occurrence: None)
  Receive Date: 20090213
  Receipt Date: 20090203
  Transmission Date: 20090719
  Serious: Yes (Hospitalization, Other)
  Sender: FDA-Public Use
  Company Number: ES-ELI_LILLY_AND_COMPANY-ES200901004933

PATIENT
  Age: 69 Year
  Sex: Male

DRUGS (2)
  1. XIGRIS [Suspect]
     Indication: SEPSIS
     Dates: start: 20090101, end: 20090101
  2. OXYGEN [Concomitant]
     Dates: start: 20090101

REACTIONS (2)
  - EPISTAXIS [None]
  - PNEUMONIA [None]
